FAERS Safety Report 8948085 (Version 1)
Quarter: 2012Q4

REPORT INFORMATION
  Report Type: Spontaneous
  Country: US (occurrence: None)
  Receive Date: 20121203
  Receipt Date: 20121203
  Transmission Date: 20130627
  Serious: Yes (Other)
  Sender: FDA-Public Use
  Company Number: None

PATIENT
  Age: 76 Year
  Sex: Female
  Weight: 50.8 kg

DRUGS (1)
  1. FOSAMAX [Suspect]

REACTIONS (3)
  - Toothache [None]
  - Exostosis [None]
  - Exposed bone in jaw [None]
